FAERS Safety Report 6178608-5 (Version None)
Quarter: 2009Q2

REPORT INFORMATION
  Report Type: 
  Country: None (occurrence: None)
  Receive Date: 20090430
  Receipt Date: 20090420
  Transmission Date: 20091009
  Serious: Yes (Other)
  Sender: FDA-Public Use
  Company Number: SPV1-2009-00435

PATIENT

DRUGS (2)
  1. XAGRID (ANAGRELIDE HYDROCHLORIDE) CAPSULE [Suspect]
     Dosage: DF
  2. SIMVASTATIN [Suspect]
     Dosage: DF

REACTIONS (1)
  - MYOSITIS [None]
